FAERS Safety Report 24939953 (Version 1)
Quarter: 2025Q1

REPORT INFORMATION
  Report Type: Spontaneous
  Country: RU (occurrence: RU)
  Receive Date: 20250207
  Receipt Date: 20250207
  Transmission Date: 20250409
  Serious: Yes (Other)
  Sender: ROCHE
  Company Number: RU-ROCHE-10000194198

PATIENT
  Age: 38 Year
  Sex: Female

DRUGS (6)
  1. TRASTUZUMAB [Suspect]
     Active Substance: TRASTUZUMAB
     Indication: Breast cancer
     Dosage: 6 MG/KG (8 MG/KG LOADING DOSE) ON DAY 1
     Route: 065
     Dates: start: 20201216
  2. PERTUZUMAB [Suspect]
     Active Substance: PERTUZUMAB
     Indication: Breast cancer
     Route: 065
  3. ANASTROZOLE [Concomitant]
     Active Substance: ANASTROZOLE
     Route: 048
  4. ZOLEDRONIC ACID [Concomitant]
     Active Substance: ZOLEDRONIC ACID
     Route: 040
  5. DOCETAXEL [Concomitant]
     Active Substance: DOCETAXEL
  6. GOSERELIN [Concomitant]
     Active Substance: GOSERELIN

REACTIONS (4)
  - Leukopenia [Unknown]
  - Neutropenia [Unknown]
  - Breast cancer recurrent [Unknown]
  - Lymphadenopathy [Unknown]
